FAERS Safety Report 4354062-0 (Version None)
Quarter: 2004Q2

REPORT INFORMATION
  Report Type: 
  Country: None (occurrence: None)
  Receive Date: 20040503
  Receipt Date: 20040329
  Transmission Date: 20050107
  Serious: Yes (Death)
  Sender: FDA-Public Use
  Company Number: JP-JNJFOC-20040404761

PATIENT
  Age: 52 Year
  Sex: Male

DRUGS (11)
  1. RISPERDAL [Suspect]
     Indication: SCHIZOPHRENIA
     Dosage: 6 MG,    IN 1 DAY, ORAL
     Route: 048
     Dates: start: 20020801, end: 20040323
  2. BIPERIDEN HYDROCHLORIDE TAB [Suspect]
     Indication: PARKINSON'S DISEASE
     Dosage: 6 MG,   IN 1 DAY, ORAL
     Route: 048
     Dates: start: 19830914, end: 20040323
  3. LITHIUM CARBONATE [Suspect]
     Indication: PARKINSON'S DISEASE
     Dosage: 3 MG,   IN 1 DAY, ORAL
     Route: 048
     Dates: start: 19830914, end: 20040323
  4. LITHIUM CARBONATE [Concomitant]
     Indication: MANIA
     Dosage: 1.2 G,   IN 1 DAY, ORAL
     Route: 048
     Dates: start: 19830914, end: 20040323
  5. FLUNITRAZEPAM (FLUNITRAZEPAM) UNSPECIFIED [Suspect]
     Indication: INSOMNIA
     Dosage: 2 MG,  IN 1 DAY, ORAL
     Route: 048
     Dates: start: 19830914, end: 20040323
  6. STOMACHICS AND DIGESTIVES (STOMACHIC MIXTURE /THA/) UNSPECIFIED [Suspect]
     Indication: GASTRITIS
     Dosage: 0.72 G,  IN 1 DAY, ORAL
     Route: 048
     Dates: start: 19850128, end: 20040323
  7. MIDODRINE HCL [Suspect]
     Indication: HYPOTENSION
     Dosage: 6 MG,   IN 1 DAY, ORAL
     Route: 048
     Dates: start: 19900601, end: 20040323
  8. SENNOSIDE (ALL OTHER THERAPEUTIC PRODUCTS) UNSPECIFIED [Suspect]
     Indication: CONSTIPATION
     Dosage: 24 MG,   IN 1 DAY, ORAL
     Route: 048
     Dates: start: 19940902, end: 20040323
  9. VALPROATE SODIUM [Suspect]
     Indication: MANIA
     Dosage: 600 MG,   IN 1 DAY, ORAL
     Route: 048
     Dates: start: 20010730, end: 20040323
  10. ZOTEPINE (ZOTEPINE) UNSPECIFIED [Suspect]
     Indication: SCHIZOPHRENIA
     Dosage: 150 MG,   IN 1 DAY, ORAL
     Route: 048
     Dates: start: 20020801, end: 20040323
  11. HYDROXYZINE PAMOATE [Suspect]
     Indication: MANIA
     Dosage: 90 MG,  IN 1 DAY, ORAL
     Route: 048
     Dates: start: 20031029, end: 20040323

REACTIONS (9)
  - DRUG INTERACTION [None]
  - HYPOKINESIA [None]
  - HYPOTHERMIA [None]
  - HYPOTHYROIDISM [None]
  - LOSS OF CONSCIOUSNESS [None]
  - MENINGITIS [None]
  - PALLOR [None]
  - SOMNOLENCE [None]
  - SUBDURAL HYGROMA [None]
